FAERS Safety Report 5669426-2 (Version None)
Quarter: 2008Q1

REPORT INFORMATION
  Report Type: 
  Country: None (occurrence: None)
  Receive Date: 20080317
  Receipt Date: 20080310
  Transmission Date: 20080703
  Serious: Yes (Life-Threatening, Hospitalization, Other)
  Sender: FDA-Public Use
  Company Number: A0715590A

PATIENT
  Age: 32 Year
  Sex: Female

DRUGS (3)
  1. TELZIR [Suspect]
     Indication: HIV INFECTION
     Route: 048
     Dates: start: 20060101
  2. ERGOTAMINE [Suspect]
     Indication: HEADACHE
     Route: 065
     Dates: start: 20070603
  3. 3TC + AZT [Concomitant]
     Indication: HIV INFECTION
     Dates: start: 20060101

REACTIONS (17)
  - APHASIA [None]
  - ARTERIAL DISORDER [None]
  - CARDIOVASCULAR DISORDER [None]
  - CYANOSIS [None]
  - DEPRESSED LEVEL OF CONSCIOUSNESS [None]
  - DIRECTIONAL DOPPLER FLOW TESTS ABNORMAL [None]
  - ERGOT POISONING [None]
  - GLASGOW COMA SCALE ABNORMAL [None]
  - HEMIPLEGIA [None]
  - HYPOTENSION [None]
  - PAIN [None]
  - PARESIS [None]
  - POOR PERIPHERAL CIRCULATION [None]
  - POPLITEAL PULSE DECREASED [None]
  - PULSE ABNORMAL [None]
  - PULSE ABSENT [None]
  - VASOSPASM [None]
